FAERS Safety Report 4895404-7 (Version None)
Quarter: 2006Q1

REPORT INFORMATION
  Report Type: 
  Country: None (occurrence: None)
  Receive Date: 20060130
  Receipt Date: 20050420
  Transmission Date: 20060701
  Serious: No
  Sender: FDA-Public Use
  Company Number: US-GLAXOSMITHKLINE-A0555035A

PATIENT

DRUGS (1)
  1. COMBIVIR [Suspect]
     Indication: HIV INFECTION
     Route: 065

REACTIONS (2)
  - HAEMATURIA [None]
  - MYOPATHY [None]
